FAERS Safety Report 5598710-6 (Version None)
Quarter: 2008Q1

REPORT INFORMATION
  Report Type: 
  Country: None (occurrence: None)
  Receive Date: 20080122
  Receipt Date: 20080110
  Transmission Date: 20080703
  Serious: Yes (Other)
  Sender: FDA-Public Use
  Company Number: GB-ELI_LILLY_AND_COMPANY-GB200801002498

PATIENT
  Age: 59 Year
  Sex: Male

DRUGS (2)
  1. CYMBALTA [Suspect]
     Indication: DEPRESSION
     Dosage: UNK, UNKNOWN
     Dates: start: 20071017
  2. LOSARTAN [Concomitant]
     Dosage: UNK, UNKNOWN

REACTIONS (3)
  - BLOOD PRESSURE INCREASED [None]
  - COLD SWEAT [None]
  - MALAISE [None]
